FAERS Safety Report 9741475 (Version 2)
Quarter: 2013Q4

REPORT INFORMATION
  Report Type: Spontaneous
  Country: IT (occurrence: IT)
  Receive Date: 20131209
  Receipt Date: 20131226
  Transmission Date: 20140711
  Serious: Yes (Hospitalization)
  Sender: FDA-Public Use
  Company Number: PHHY2013IT143577

PATIENT
  Sex: Female

DRUGS (3)
  1. ESTRADERM MX [Suspect]
     Indication: HORMONE REPLACEMENT THERAPY
     Dosage: 50 UG, DAILY
     Route: 062
  2. FARLUTAL [Suspect]
     Indication: MENOPAUSAL SYMPTOMS
     Dosage: 10 MG, 10 DAYS/MONTH
     Route: 048
  3. EUTIROX [Concomitant]
     Indication: HYPOTHYROIDISM
     Dosage: 75 UG, UNK
     Route: 048

REACTIONS (5)
  - Acute myocardial infarction [Recovering/Resolving]
  - Chest pain [Unknown]
  - Hyperhidrosis [Unknown]
  - Electrocardiogram ST segment elevation [Unknown]
  - Coronary artery disease [Unknown]
